FAERS Safety Report 9243155 (Version 1)
Quarter: 2013Q2

REPORT INFORMATION
  Report Type: Spontaneous
  Country: BE (occurrence: BE)
  Receive Date: 20130419
  Receipt Date: 20130419
  Transmission Date: 20140414
  Serious: Yes (Death, Hospitalization, Other)
  Sender: FDA-Public Use
  Company Number: BE-B.I. PHARMACEUTICALS,INC./RIDGEFIELD-2013-BL-00200BL

PATIENT
  Sex: Male

DRUGS (7)
  1. PRADAXA [Suspect]
     Indication: ATRIAL FIBRILLATION
     Dosage: 220 MG
     Dates: start: 20121226, end: 20130108
  2. ZYLORIC [Concomitant]
     Indication: BLOOD URIC ACID
  3. CORDARONE [Concomitant]
     Indication: CARDIAC DISORDER
  4. BISOPROLOL [Concomitant]
     Indication: HYPERTENSION
     Dosage: 10 MG
  5. BURINEX [Concomitant]
     Indication: DIURETIC THERAPY
  6. GLUCOPHAGE [Concomitant]
     Indication: DIABETES MELLITUS
     Dosage: 1500 NR
  7. ASAFLOW [Concomitant]

REACTIONS (4)
  - Haemorrhage urinary tract [Fatal]
  - Gastrointestinal haemorrhage [Fatal]
  - Eye haemorrhage [Fatal]
  - Renal failure acute [Unknown]
